FAERS Safety Report 19288011 (Version 5)
Quarter: 2021Q3

REPORT INFORMATION
  Report Type: Report from Study
  Country: US (occurrence: US)
  Receive Date: 20210522
  Receipt Date: 20210831
  Transmission Date: 20211014
  Serious: No
  Sender: FDA-Public Use
  Company Number: NVSC2021US110224

PATIENT
  Sex: Female

DRUGS (3)
  1. TABRECTA [Suspect]
     Active Substance: CAPMATINIB
     Dosage: 4 DF, BID
     Route: 048
  2. TABRECTA [Suspect]
     Active Substance: CAPMATINIB
     Dosage: UNK
     Route: 048
  3. TABRECTA [Suspect]
     Active Substance: CAPMATINIB
     Indication: LUNG NEOPLASM MALIGNANT
     Dosage: 4 UNK, ONCE2SDO
     Route: 048

REACTIONS (12)
  - Bronchitis [Unknown]
  - Blood creatinine increased [Unknown]
  - Peripheral swelling [Unknown]
  - Flatulence [Unknown]
  - Hyperphagia [Unknown]
  - Abdominal distension [Unknown]
  - Infection [Unknown]
  - Erythema [Unknown]
  - Muscle spasms [Unknown]
  - Dyspnoea [Unknown]
  - Respiration abnormal [Not Recovered/Not Resolved]
  - Joint swelling [Unknown]
